FAERS Safety Report 16765937 (Version 2)
Quarter: 2020Q2

REPORT INFORMATION
  Report Type: Spontaneous
  Country: AU (occurrence: AU)
  Receive Date: 20190903
  Receipt Date: 20200629
  Transmission Date: 20200713
  Serious: Yes (Life-Threatening, Other)
  Sender: FDA-Public Use
  Company Number: AU-ACCORD-153402

PATIENT
  Sex: Female

DRUGS (4)
  1. NIZATIDINE. [Suspect]
     Active Substance: NIZATIDINE
     Indication: ALLERGY TO CHEMICALS
  2. XOLAIR [Concomitant]
     Active Substance: OMALIZUMAB
  3. FEXOFENADINE [Suspect]
     Active Substance: FEXOFENADINE HYDROCHLORIDE
     Indication: ALLERGY TO CHEMICALS
     Dosage: 1-2 TIMES DAILY
  4. MONTELUKAST [Suspect]
     Active Substance: MONTELUKAST SODIUM
     Indication: HYPERSENSITIVITY

REACTIONS (5)
  - Treatment failure [Unknown]
  - Rash [Unknown]
  - Dyspnoea [Unknown]
  - Impaired quality of life [Unknown]
  - Off label use [Unknown]
